FAERS Safety Report 11574334 (Version 2)
Quarter: 2015Q4

REPORT INFORMATION
  Report Type: Spontaneous
  Country: US (occurrence: None)
  Receive Date: 20150928
  Receipt Date: 20151015
  Transmission Date: 20160304
  Serious: Yes (Life-Threatening, Hospitalization, Other)
  Sender: FDA-Public Use
  Company Number: 1713747-2015-999334

PATIENT
  Age: 57 Year
  Sex: Male
  Weight: 108 kg

DRUGS (11)
  1. PHOSLO [Concomitant]
     Active Substance: CALCIUM ACETATE
  2. RENVELA [Concomitant]
     Active Substance: SEVELAMER CARBONATE
  3. OPTIFLUX 160NRE DIALYIZER [Concomitant]
  4. BICARB [Concomitant]
  5. HEPARIN [Concomitant]
     Active Substance: HEPARIN SODIUM
  6. SALINE ORAL OTC [Suspect]
     Active Substance: SODIUM CHLORIDE
     Indication: CHRONIC KIDNEY DISEASE
     Dates: start: 20121023
  7. UNKNOWN BLOODLINES [Concomitant]
  8. ATORVASTATIN [Concomitant]
     Active Substance: ATORVASTATIN
  9. CARVEDILOL. [Concomitant]
     Active Substance: CARVEDILOL
  10. FRESENIUS T MACHINE [Concomitant]
  11. GRANUFLO 2K2.55CALMG 100 DEXTROSE [Concomitant]

REACTIONS (3)
  - Cardiac arrest [None]
  - Blood pressure increased [None]
  - Unresponsive to stimuli [None]

NARRATIVE: CASE EVENT DATE: 20150909
